FAERS Safety Report 18300463 (Version 1)
Quarter: 2020Q3

REPORT INFORMATION
  Report Type: Spontaneous
  Country: US (occurrence: US)
  Receive Date: 20200923
  Receipt Date: 20200923
  Transmission Date: 20201103
  Serious: Yes (Hospitalization)
  Sender: FDA-Public Use
  Company Number: None

PATIENT
  Age: 49 Year
  Sex: Male
  Weight: 84 kg

DRUGS (1)
  1. FLUOXETINE (FLUOXETINE HCL 40MG CAP) [Suspect]
     Active Substance: FLUOXETINE HYDROCHLORIDE
     Indication: SCHIZOAFFECTIVE DISORDER
     Route: 048
     Dates: start: 20200716, end: 20200805

REACTIONS (6)
  - Agitation [None]
  - Mania [None]
  - Suicidal ideation [None]
  - Aggression [None]
  - Schizophrenia [None]
  - Homicidal ideation [None]

NARRATIVE: CASE EVENT DATE: 20200805
